FAERS Safety Report 5799892-3 (Version None)
Quarter: 2008Q3

REPORT INFORMATION
  Report Type: 
  Country: None (occurrence: None)
  Receive Date: 20080703
  Receipt Date: 20080630
  Transmission Date: 20090109
  Serious: Yes (Other)
  Sender: FDA-Public Use
  Company Number: US-BAYER-200810460BCC

PATIENT
  Age: 81 Year
  Sex: Female
  Weight: 61 kg

DRUGS (10)
  1. ASPIRIN [Suspect]
     Indication: CARDIOVASCULAR EVENT PROPHYLAXIS
     Dosage: TOTAL DAILY DOSE: 81 MG  UNIT DOSE: 81 MG
     Route: 048
  2. GLYSET [Concomitant]
     Route: 065
  3. METFORMIN HCL [Concomitant]
  4. GLIPISIDE [Concomitant]
  5. TOPROL-XL [Concomitant]
  6. SIMVASTATIN [Concomitant]
  7. LISINOPRIL [Concomitant]
  8. FOSAMAX [Concomitant]
  9. MACULAR PROTECT VITAMINS [Concomitant]
  10. CALTRATE [Concomitant]

REACTIONS (2)
  - DYSPHASIA [None]
  - TRANSIENT ISCHAEMIC ATTACK [None]
